FAERS Safety Report 11999004 (Version 12)
Quarter: 2016Q2

REPORT INFORMATION
  Report Type: Report from Study
  Country: CA (occurrence: CA)
  Receive Date: 20160204
  Receipt Date: 20160505
  Transmission Date: 20160815
  Serious: Yes (Hospitalization, Other)
  Sender: FDA-Public Use
  Company Number: CA-ROCHE-1660703

PATIENT
  Age: 67 Year
  Sex: Female

DRUGS (7)
  1. OXAZEPAM. [Concomitant]
     Active Substance: OXAZEPAM
  2. SYMBICORT [Concomitant]
     Active Substance: BUDESONIDE\FORMOTEROL FUMARATE DIHYDRATE
  3. CITALOPRAM [Concomitant]
     Active Substance: CITALOPRAM HYDROBROMIDE
  4. ACTONEL [Concomitant]
     Active Substance: RISEDRONATE SODIUM
  5. SYNTHROID [Concomitant]
     Active Substance: LEVOTHYROXINE SODIUM
     Indication: ASTHMA
  6. AVASTIN [Suspect]
     Active Substance: BEVACIZUMAB
     Indication: OVARIAN CANCER
     Route: 042
     Dates: start: 20150929
  7. NORVASC [Suspect]
     Active Substance: AMLODIPINE BESYLATE
     Indication: PRODUCT USED FOR UNKNOWN INDICATION
     Route: 065
     Dates: start: 2016

REACTIONS (25)
  - Red cell distribution width increased [Not Recovered/Not Resolved]
  - Lymphocyte count decreased [Not Recovered/Not Resolved]
  - Proteinuria [Not Recovered/Not Resolved]
  - Platelet count decreased [Unknown]
  - Platelet count increased [Unknown]
  - Monocyte count increased [Unknown]
  - Joint swelling [Recovered/Resolved]
  - Blood creatinine increased [Unknown]
  - Lung disorder [Unknown]
  - Monocyte count decreased [Unknown]
  - Red blood cell count decreased [Not Recovered/Not Resolved]
  - Mean cell volume increased [Not Recovered/Not Resolved]
  - Mean cell haemoglobin concentration decreased [Not Recovered/Not Resolved]
  - Eosinophil count increased [Unknown]
  - Bronchitis [Not Recovered/Not Resolved]
  - Fatigue [Recovering/Resolving]
  - Hypertension [Not Recovered/Not Resolved]
  - Nasopharyngitis [Recovering/Resolving]
  - Body temperature decreased [Not Recovered/Not Resolved]
  - Blood pressure increased [Unknown]
  - Oedema peripheral [Not Recovered/Not Resolved]
  - Haemoglobin decreased [Not Recovered/Not Resolved]
  - Haematocrit decreased [Unknown]
  - Mean cell haemoglobin increased [Not Recovered/Not Resolved]
  - Headache [Not Recovered/Not Resolved]

NARRATIVE: CASE EVENT DATE: 20151122
